FAERS Safety Report 19952824 (Version 2)
Quarter: 2023Q2

REPORT INFORMATION
  Report Type: Spontaneous
  Country: FR (occurrence: FR)
  Receive Date: 20211014
  Receipt Date: 20230612
  Transmission Date: 20230722
  Serious: Yes (Hospitalization, Other)
  Sender: FDA-Public Use
  Company Number: FR-ETHYPHARM-2021001395

PATIENT
  Age: 38 Year
  Sex: Male
  Weight: 72 kg

DRUGS (13)
  1. ACETAMINOPHEN [Suspect]
     Active Substance: ACETAMINOPHEN
     Indication: Poisoning deliberate
     Dosage: 8 GRAM, ONCE A DAY (SINGLE INTAKE)
     Route: 065
     Dates: start: 20210830
  2. BACLOFEN [Suspect]
     Active Substance: BACLOFEN
     Indication: Alcohol use disorder
     Dosage: 5 DOSAGE FORM, ONCE A DAY(SINGLE INTAKE)
     Route: 065
     Dates: start: 20210830, end: 20210830
  3. BACLOFEN [Suspect]
     Active Substance: BACLOFEN
     Indication: Poisoning deliberate
     Dosage: 15 MILLIGRAM, ONCE A DAY(IN 3 INTAKES)
     Route: 065
     Dates: start: 20210814, end: 20210815
  4. BACLOFEN [Suspect]
     Active Substance: BACLOFEN
     Dosage: 20 MILLIGRAM, ONCE A DAY(IN 2 INTAKES)
     Route: 065
     Dates: start: 20210816, end: 20210831
  5. BACLOFEN [Suspect]
     Active Substance: BACLOFEN
     Dosage: 10 MILLIGRAM, ONCE A DAY(IN 2 INTAKES)
     Route: 065
     Dates: start: 20210812, end: 20210813
  6. CANNABIS SATIVA SUBSP. INDICA TOP [Suspect]
     Active Substance: CANNABIS SATIVA SUBSP. INDICA TOP
     Indication: Poisoning deliberate
     Dosage: UNK
     Route: 065
     Dates: start: 20210830
  7. OXAZEPAM [Suspect]
     Active Substance: OXAZEPAM
     Indication: Poisoning deliberate
     Dosage: 150 MILLIGRAM, ONCE A DAY(SINGLE INTAKE OF 3 DFS)
     Route: 065
     Dates: start: 20210830
  8. OXAZEPAM [Suspect]
     Active Substance: OXAZEPAM
     Indication: Poisoning deliberate
     Dosage: 150 MILLIGRAM, ONCE A DAY(SINGLE INTAKE OF 15 DFS)
     Route: 065
     Dates: start: 20210830, end: 20210830
  9. OXAZEPAM [Suspect]
     Active Substance: OXAZEPAM
     Indication: Mixed anxiety and depressive disorder
     Dosage: 20 MILLIGRAM
     Route: 065
     Dates: start: 20210322
  10. OXAZEPAM [Suspect]
     Active Substance: OXAZEPAM
     Indication: Alcohol use disorder
  11. ATARAX [Concomitant]
     Active Substance: HYDROXYZINE HYDROCHLORIDE
     Indication: Mixed anxiety and depressive disorder
     Dosage: 25 MILLIGRAM
     Route: 065
     Dates: start: 20210609
  12. PAROXETINE [Concomitant]
     Active Substance: PAROXETINE
     Indication: Mixed anxiety and depressive disorder
     Dosage: 25 MILLIGRAM
     Route: 065
     Dates: start: 20210609
  13. VITAMIN B6 [Concomitant]
     Active Substance: PYRIDOXINE HYDROCHLORIDE
     Indication: Poisoning deliberate
     Dosage: UNK
     Route: 065
     Dates: start: 20210830

REACTIONS (1)
  - Poisoning deliberate [Recovered/Resolved]

NARRATIVE: CASE EVENT DATE: 20210830
